FAERS Safety Report 12004955 (Version 5)
Quarter: 2018Q1

REPORT INFORMATION
  Report Type: Spontaneous
  Country: BR (occurrence: BR)
  Receive Date: 20160204
  Receipt Date: 20180322
  Transmission Date: 20180508
  Serious: Yes (Other)
  Sender: FDA-Public Use
  Company Number: BR-JNJFOC-20160124843

PATIENT
  Age: 72 Year
  Sex: Female
  Weight: 44 kg

DRUGS (11)
  1. ENALAPRIL MALEATE. [Concomitant]
     Active Substance: ENALAPRIL MALEATE
     Route: 065
  2. SIMPONI [Suspect]
     Active Substance: GOLIMUMAB
     Indication: RHEUMATOID ARTHRITIS
     Route: 058
     Dates: start: 20150917
  3. ATORVASTATIN [Concomitant]
     Active Substance: ATORVASTATIN
     Route: 065
  4. SIMPONI [Suspect]
     Active Substance: GOLIMUMAB
     Indication: RHEUMATOID ARTHRITIS
     Route: 058
     Dates: start: 20180106
  5. AZULFIDINE [Concomitant]
     Active Substance: SULFASALAZINE
     Route: 065
  6. RISEDRONATE [Concomitant]
     Active Substance: RISEDRONATE SODIUM
     Route: 065
  7. NIMODIPINE. [Concomitant]
     Active Substance: NIMODIPINE
     Route: 065
  8. EBASTEL [Concomitant]
     Active Substance: EBASTINE
     Route: 065
  9. RISEDRONATE [Concomitant]
     Active Substance: RISEDRONATE SODIUM
     Route: 065
  10. EUTIROX [Concomitant]
     Active Substance: LEVOTHYROXINE SODIUM
     Route: 065
  11. PURAN [Concomitant]
     Active Substance: LEVOTHYROXINE SODIUM
     Route: 065

REACTIONS (19)
  - Visual impairment [Unknown]
  - Hypothyroidism [Unknown]
  - Influenza [Unknown]
  - Malaise [Unknown]
  - Eye swelling [Unknown]
  - Finger amputation [Unknown]
  - Osteoarthritis [Unknown]
  - Allergic cough [Unknown]
  - High density lipoprotein increased [Unknown]
  - Weight decreased [Not Recovered/Not Resolved]
  - Drug administration error [Unknown]
  - Dizziness [Not Recovered/Not Resolved]
  - Drug ineffective [Unknown]
  - Osteoporosis [Unknown]
  - Off label use [Unknown]
  - Head discomfort [Unknown]
  - Swelling [Unknown]
  - Alopecia [Unknown]
  - Depression [Unknown]

NARRATIVE: CASE EVENT DATE: 201710
